FAERS Safety Report 7606351-1 (Version None)
Quarter: 2011Q3

REPORT INFORMATION
  Report Type: 
  Country: None (occurrence: None)
  Receive Date: 20110713
  Receipt Date: 20110707
  Transmission Date: 20111222
  Serious: Yes (Disabling)
  Sender: FDA-Public Use
  Company Number: GB-TEVA-289898ISR

PATIENT
  Age: 29 Year
  Sex: Female

DRUGS (1)
  1. ETOPOSIDE [Suspect]
     Indication: MYELOID LEUKAEMIA
     Route: 042

REACTIONS (2)
  - ENTEROCOLITIS HAEMORRHAGIC [None]
  - DIARRHOEA HAEMORRHAGIC [None]
